FAERS Safety Report 6486654-7 (Version None)
Quarter: 2009Q4

REPORT INFORMATION
  Report Type: 
  Country: None (occurrence: None)
  Receive Date: 20091210
  Receipt Date: 20090818
  Transmission Date: 20100525
  Serious: No
  Sender: FDA-Public Use
  Company Number: US-AMGEN-KDL358413

PATIENT
  Sex: Female

DRUGS (20)
  1. ENBREL [Suspect]
     Indication: PSORIATIC ARTHROPATHY
     Route: 058
     Dates: start: 20081009
  2. ENBREL [Suspect]
     Indication: PSORIASIS
  3. MOMETASONE FUROATE [Concomitant]
  4. LOVASTATIN [Concomitant]
  5. LORTAB [Concomitant]
  6. XANAX [Concomitant]
  7. DARVON [Concomitant]
  8. DAYPRO [Concomitant]
  9. ELAVIL [Concomitant]
  10. EFFEXOR [Concomitant]
     Route: 048
  11. SPIRONOLACTONE [Concomitant]
  12. PERCOCET [Concomitant]
  13. IBUPROFEN [Concomitant]
  14. ASCORBIC ACID [Concomitant]
     Route: 048
  15. CALCIUM [Concomitant]
     Route: 048
  16. VITAMIN B6 [Concomitant]
  17. VITAMIN B-12 [Concomitant]
  18. SOMA [Concomitant]
  19. ATARAX [Concomitant]
  20. MECLIZINE [Concomitant]

REACTIONS (3)
  - INJECTION SITE PAIN [None]
  - PSORIASIS [None]
  - SKIN HAEMORRHAGE [None]
